FAERS Safety Report 4824614-X (Version None)
Quarter: 2005Q4

REPORT INFORMATION
  Report Type: 
  Country: None (occurrence: None)
  Receive Date: 20051108
  Receipt Date: 20051022
  Transmission Date: 20060501
  Serious: Yes (Hospitalization)
  Sender: FDA-Public Use
  Company Number: EWC051046708

PATIENT
  Age: 72 Year
  Sex: Female

DRUGS (13)
  1. HUMULIN 50/50 [Suspect]
     Indication: DIABETES MELLITUS
     Dates: start: 20051010
  2. LASIX [Concomitant]
  3. VALSARTAN [Concomitant]
  4. AMLOGARD (AMLODIPINE BESILATE) [Concomitant]
  5. BISOPROLOL FUMARATE [Concomitant]
  6. DOMSTAL  (DOMPERIDONE) [Concomitant]
  7. EVION (TOCOPHERYL ACETATE) [Concomitant]
  8. BECOSULES [Concomitant]
  9. DULCOLAX [Concomitant]
  10. FLUTICASONE PROPIONATE W/SALMETEROL [Concomitant]
  11. IPRAVENT (IPRATROPIUM BROMIDE) [Concomitant]
  12. ATARAX (ALPRAZOLAM) [Concomitant]
  13. VIMID UR XADGRIL SMART [Concomitant]

REACTIONS (6)
  - ARTHRALGIA [None]
  - CIRCUMSTANCE OR INFORMATION CAPABLE OF LEADING TO MEDICATION ERROR [None]
  - DIABETES MELLITUS INADEQUATE CONTROL [None]
  - MEDICATION RESIDUE [None]
  - PHARMACEUTICAL PRODUCT COMPLAINT [None]
  - PRURITUS [None]
